FAERS Safety Report 6259831-8 (Version None)
Quarter: 2009Q3

REPORT INFORMATION
  Report Type: 
  Country: None (occurrence: None)
  Receive Date: 20090706
  Receipt Date: 20090706
  Transmission Date: 20100115
  Serious: Yes (Other)
  Sender: FDA-Public Use
  Company Number: None

PATIENT
  Age: 49 Year
  Sex: Female
  Weight: 79.3795 kg

DRUGS (1)
  1. ACTONEL [Suspect]
     Indication: OSTEOPOROSIS
     Dosage: 150 MG. ONCE MONTHLY PO
     Route: 048
     Dates: start: 20090701, end: 20090701

REACTIONS (4)
  - BONE PAIN [None]
  - LOCAL SWELLING [None]
  - MYALGIA [None]
  - NECK PAIN [None]
